FAERS Safety Report 4301984-2 (Version None)
Quarter: 2004Q1

REPORT INFORMATION
  Report Type: 
  Country: None (occurrence: None)
  Receive Date: 20040217
  Receipt Date: 20031208
  Transmission Date: 20041129
  Serious: No
  Sender: FDA-Public Use
  Company Number: PHEH2003US10339

PATIENT
  Age: 60 Year
  Sex: Female
  Weight: 84.8 kg

DRUGS (8)
  1. GLEEVEC [Suspect]
     Indication: CHRONIC MYELOID LEUKAEMIA
     Dosage: 400 MG, QD, ORAL
     Route: 048
  2. METOCLOPRAMIDE [Concomitant]
  3. LASIX [Concomitant]
  4. ULTRAM [Concomitant]
  5. NEURONTIN [Concomitant]
  6. POTASSIUM (POTASSIUM) [Concomitant]
  7. MAXALT [Concomitant]
  8. PHENERGAN [Concomitant]

REACTIONS (3)
  - DISORIENTATION [None]
  - DIZZINESS [None]
  - RASH GENERALISED [None]
